FAERS Safety Report 6495422-1 (Version None)
Quarter: 2009Q4

REPORT INFORMATION
  Report Type: 
  Country: None (occurrence: None)
  Receive Date: 20091214
  Receipt Date: 20090617
  Transmission Date: 20100525
  Serious: No
  Sender: FDA-Public Use
  Company Number: US-BRISTOL-MYERS SQUIBB COMPANY-14669576

PATIENT
  Sex: Male

DRUGS (2)
  1. ABILIFY [Suspect]
     Indication: MAJOR DEPRESSION
     Dosage: DURATION:1 MONTH
     Dates: start: 20090101
  2. CYMBALTA [Concomitant]
     Dosage: DURATION:2-3 MONTHS

REACTIONS (2)
  - CONFUSIONAL STATE [None]
  - HEADACHE [None]
